FAERS Safety Report 18599745 (Version 1)
Quarter: 2020Q4

REPORT INFORMATION
  Report Type: Report from Study
  Country: TW (occurrence: TW)
  Receive Date: 20201210
  Receipt Date: 20201210
  Transmission Date: 20210114
  Serious: Yes (Other)
  Sender: FDA-Public Use
  Company Number: TW-ROCHE-2727072

PATIENT
  Age: 73 Year
  Sex: Female
  Weight: 54.1 kg

DRUGS (9)
  1. BARACLUDE [Concomitant]
     Active Substance: ENTECAVIR
     Dates: start: 20200319
  2. RINDERON [Concomitant]
     Dates: start: 20200423
  3. STILNOX [Concomitant]
     Active Substance: ZOLPIDEM TARTRATE
     Dates: start: 20191218
  4. NINCORT [Concomitant]
     Dosage: 6G/TUBE
     Dates: start: 20200604
  5. ATEZOLIZUMAB. [Suspect]
     Active Substance: ATEZOLIZUMAB
     Indication: NON-SMALL CELL LUNG CANCER METASTATIC
     Dosage: DATE OF LAST DOSE PRIOR TO ADVERSE EVENT 13/AUG/2020
     Route: 041
     Dates: start: 20200423
  6. DORISON [Concomitant]
     Dates: start: 20200423
  7. BEVACIZUMAB. [Suspect]
     Active Substance: BEVACIZUMAB
     Indication: NON-SMALL CELL LUNG CANCER METASTATIC
     Dosage: DATE OF LAST DOSE PRIOR TO ADVERSE EVENT/SPECIAL SITUATION WAS 13/AUG/2020
     Route: 042
     Dates: start: 20200423
  8. ALPRALINE [Concomitant]
     Active Substance: ALPRAZOLAM
     Dates: start: 20180404
  9. GLUCOPHAGE [Concomitant]
     Active Substance: METFORMIN HYDROCHLORIDE
     Dates: start: 20201206

REACTIONS (1)
  - Adrenal insufficiency [Recovering/Resolving]

NARRATIVE: CASE EVENT DATE: 20200901
